FAERS Safety Report 21795011 (Version 1)
Quarter: 2022Q4

REPORT INFORMATION
  Report Type: Spontaneous
  Country: US (occurrence: None)
  Receive Date: 20221228
  Receipt Date: 20221228
  Transmission Date: 20230113
  Serious: Yes (Other)
  Sender: FDA-Public Use
  Company Number: None

PATIENT
  Sex: Female

DRUGS (11)
  1. VYNDAMAX [Suspect]
     Active Substance: TAFAMIDIS
     Indication: Amyloidosis
     Dosage: TAKE 1 CAPSULE BY MOUTH DAILY
     Route: 048
     Dates: start: 20221102
  2. ACETAMINOPHN [Concomitant]
  3. VITAMIN B COMPLEX [Concomitant]
     Active Substance: CYANOCOBALAMIN\DEXPANTHENOL\NIACINAMIDE\PYRIDOXINE HYDROCHLORIDE\RIBOFLAVIN 5^-PHOSPHATE SODIUM\THIA
  4. KLOR-CON M20 [Concomitant]
     Active Substance: POTASSIUM CHLORIDE
  5. METOPROL TAR TAB [Concomitant]
  6. PROLIA [Concomitant]
     Active Substance: DENOSUMAB
  7. SPIRONOLACT TAB [Concomitant]
  8. TORSEMIDE [Concomitant]
  9. VITAMIN D [Concomitant]
  10. WARFARIN [Concomitant]
     Active Substance: WARFARIN
  11. ZYLOPRIM [Concomitant]

REACTIONS (1)
  - Surgery [None]
